FAERS Safety Report 6062295-0 (Version None)
Quarter: 2009Q1

REPORT INFORMATION
  Report Type: 
  Country: None (occurrence: None)
  Receive Date: 20090202
  Receipt Date: 20090202
  Transmission Date: 20090719
  Serious: Yes (Hospitalization)
  Sender: FDA-Public Use
  Company Number: None

PATIENT
  Age: 75 Year
  Sex: Male

DRUGS (1)
  1. ACETAMINOPHEN AND HYDROCODONE BITARTRATE [Suspect]
     Indication: PAIN
     Dosage: 5/500 MG OTHER PO
     Route: 048
     Dates: start: 20090121, end: 20090124

REACTIONS (3)
  - ANAPHYLACTIC REACTION [None]
  - RASH [None]
  - RESPIRATORY DISTRESS [None]
